FAERS Safety Report 5271510-2 (Version None)
Quarter: 2007Q1

REPORT INFORMATION
  Report Type: 
  Country: None (occurrence: None)
  Receive Date: 20070316
  Receipt Date: 20070302
  Transmission Date: 20070707
  Serious: Yes (Other)
  Sender: FDA-Public Use
  Company Number: WWISSUE-59

PATIENT
  Sex: Female

DRUGS (1)
  1. CIPROFLOXACIN [Suspect]
     Dosage: UNK, UNK, ORAL
     Route: 048
     Dates: start: 20061112, end: 20061116

REACTIONS (1)
  - DRUG HYPERSENSITIVITY [None]
